FAERS Safety Report 15620990 (Version 1)
Quarter: 2018Q4

REPORT INFORMATION
  Report Type: Spontaneous
  Country: US (occurrence: US)
  Receive Date: 20181115
  Receipt Date: 20181115
  Transmission Date: 20190205
  Serious: Yes (Other)
  Sender: FDA-Public Use
  Company Number: US-RECORDATI RARE DISEASES INC.-US-R13005-18-00279

PATIENT
  Age: 23 Year
  Sex: Male

DRUGS (4)
  1. FENTANYL ANALOGUES [Concomitant]
     Indication: PRODUCT USED FOR UNKNOWN INDICATION
     Route: 065
  2. METHAMPHETAMINE [Suspect]
     Active Substance: METHAMPHETAMINE
     Indication: PRODUCT USED FOR UNKNOWN INDICATION
     Route: 065
  3. NALOXONE [Concomitant]
     Active Substance: NALOXONE
     Indication: TOXICITY TO VARIOUS AGENTS
     Route: 042
  4. NALOXONE [Concomitant]
     Active Substance: NALOXONE
     Route: 042

REACTIONS (2)
  - Toxicity to various agents [Unknown]
  - Pulmonary oedema [Recovered/Resolved]
